FAERS Safety Report 25484873 (Version 2)
Quarter: 2025Q3

REPORT INFORMATION
  Report Type: Spontaneous
  Country: BR (occurrence: BR)
  Receive Date: 20250626
  Receipt Date: 20250709
  Transmission Date: 20251020
  Serious: Yes (Other)
  Sender: MERCK SHARP & DOHME LLC
  Company Number: BR-009507513-2297638

PATIENT
  Age: 58 Year
  Sex: Female

DRUGS (4)
  1. PEMBROLIZUMAB [Suspect]
     Active Substance: PEMBROLIZUMAB
     Indication: Lung adenocarcinoma
  2. PEMBROLIZUMAB [Suspect]
     Active Substance: PEMBROLIZUMAB
     Indication: Lung adenocarcinoma
     Dates: start: 201912, end: 202010
  3. CARBOPLATIN [Suspect]
     Active Substance: CARBOPLATIN
     Indication: Lung adenocarcinoma
     Dates: start: 201912, end: 202003
  4. ALIMTA [Suspect]
     Active Substance: PEMETREXED DISODIUM
     Dates: start: 201912

REACTIONS (3)
  - Malignant neoplasm oligoprogression [Unknown]
  - Therapy partial responder [Unknown]
  - Pneumonitis [Unknown]

NARRATIVE: CASE EVENT DATE: 20200301
